FAERS Safety Report 6945168-8 (Version None)
Quarter: 2010Q3

REPORT INFORMATION
  Report Type: 
  Country: None (occurrence: None)
  Receive Date: 20100827
  Receipt Date: 20100504
  Transmission Date: 20110219
  Serious: No
  Sender: FDA-Public Use
  Company Number: US-KINGPHARMUSA00001-K201000544

PATIENT
  Sex: Female

DRUGS (2)
  1. FLECTOR [Suspect]
     Dosage: UNK
     Dates: start: 20090901
  2. COUMADIN [Concomitant]
     Indication: THROMBOSIS

REACTIONS (1)
  - COAGULATION TEST ABNORMAL [None]
